FAERS Safety Report 10764943 (Version 1)
Quarter: 2015Q1

REPORT INFORMATION
  Report Type: Spontaneous
  Country: US (occurrence: None)
  Receive Date: 20150203
  Receipt Date: 20150203
  Transmission Date: 20150721
  Serious: No
  Sender: FDA-Public Use
  Company Number: 7278010

PATIENT
  Sex: Male

DRUGS (1)
  1. CYANOKIT [Suspect]
     Active Substance: HYDROXOCOBALAMIN
     Indication: TOXICITY TO VARIOUS AGENTS
     Dates: start: 20140315

REACTIONS (1)
  - Chromaturia [None]

NARRATIVE: CASE EVENT DATE: 20140315
